FAERS Safety Report 12098681 (Version 1)
Quarter: 2016Q1

REPORT INFORMATION
  Report Type: Spontaneous
  Country: US (occurrence: US)
  Receive Date: 20160222
  Receipt Date: 20160222
  Transmission Date: 20160526
  Serious: No
  Sender: FDA-Public Use
  Company Number: US-TEVA-599761USA

PATIENT
  Age: 77 Year
  Sex: Female
  Weight: 61.29 kg

DRUGS (2)
  1. PROGESTERONE. [Suspect]
     Active Substance: PROGESTERONE
     Indication: MOOD SWINGS
  2. PROGESTERONE. [Suspect]
     Active Substance: PROGESTERONE
     Indication: DEPRESSION
     Route: 065

REACTIONS (2)
  - Hormone level abnormal [Unknown]
  - Product use issue [Unknown]
